FAERS Safety Report 7617374-0 (Version None)
Quarter: 2011Q3

REPORT INFORMATION
  Report Type: 
  Country: None (occurrence: None)
  Receive Date: 20110718
  Receipt Date: 20110715
  Transmission Date: 20111222
  Serious: No
  Sender: FDA-Public Use
  Company Number: US-PFIZER INC-2011161113

PATIENT
  Sex: Female
  Weight: 55.3 kg

DRUGS (2)
  1. EFFEXOR XR [Suspect]
     Indication: DEPRESSION
     Dosage: 75 MG, 1X/DAY
     Route: 048
     Dates: start: 20110707
  2. WELLBUTRIN [Concomitant]
     Indication: DEPRESSION
     Dosage: UNK

REACTIONS (5)
  - ASTHENIA [None]
  - SOMNOLENCE [None]
  - HYPERSOMNIA [None]
  - LETHARGY [None]
  - FATIGUE [None]
